FAERS Safety Report 12818593 (Version 1)
Quarter: 2016Q4

REPORT INFORMATION
  Report Type: Spontaneous
  Country: GR (occurrence: GR)
  Receive Date: 20161006
  Receipt Date: 20161006
  Transmission Date: 20170207
  Serious: Yes (Other)
  Sender: FDA-Public Use
  Company Number: PHHY2016GR137025

PATIENT
  Sex: Female

DRUGS (1)
  1. VALSARTAN. [Suspect]
     Active Substance: VALSARTAN
     Indication: GESTATIONAL HYPERTENSION
     Dosage: 160 MG, QD
     Route: 065

REACTIONS (3)
  - Oligohydramnios [Unknown]
  - Premature delivery [Unknown]
  - Maternal exposure during pregnancy [Unknown]
